FAERS Safety Report 4296942-0 (Version None)
Quarter: 2004Q1

REPORT INFORMATION
  Report Type: 
  Country: None (occurrence: None)
  Receive Date: 20040126
  Receipt Date: 20030827
  Transmission Date: 20041129
  Serious: No
  Sender: FDA-Public Use
  Company Number: USA030845657

PATIENT
  Age: 42 Year
  Sex: Male
  Weight: 93 kg

DRUGS (3)
  1. STRATTERA [Suspect]
     Indication: ATTENTION DEFICIT/HYPERACTIVITY DISORDER
     Dosage: 80 MG/1 AT BEDTIME
     Dates: start: 20030801
  2. LITHROID (LITHIUM CARBONATE) [Concomitant]
  3. KLONOPIN [Concomitant]

REACTIONS (10)
  - ANXIETY [None]
  - DISTURBANCE IN ATTENTION [None]
  - DYSURIA [None]
  - ERECTILE DYSFUNCTION [None]
  - INSOMNIA [None]
  - LOSS OF LIBIDO [None]
  - NEGATIVE THOUGHTS [None]
  - PREMATURE EJACULATION [None]
  - PSYCHOMOTOR HYPERACTIVITY [None]
  - URINARY HESITATION [None]
